FAERS Safety Report 6334878-1 (Version None)
Quarter: 2009Q3

REPORT INFORMATION
  Report Type: 
  Country: None (occurrence: None)
  Receive Date: 20090831
  Receipt Date: 20090823
  Transmission Date: 20100115
  Serious: Yes (Other)
  Sender: FDA-Public Use
  Company Number: HK-AVENTIS-200915175GDDC

PATIENT
  Age: 57 Year
  Sex: Female
  Weight: 52 kg

DRUGS (6)
  1. TAXOTERE [Suspect]
     Dosage: DOSE: 100-105
     Route: 042
     Dates: start: 20081013, end: 20081215
  2. CYCLOPHOSPHAMIDE [Concomitant]
     Route: 042
     Dates: start: 20081013, end: 20081215
  3. NAVOBAN [Concomitant]
     Indication: ANTIEMETIC SUPPORTIVE CARE
     Route: 042
     Dates: start: 20081013, end: 20081215
  4. EMEND [Concomitant]
     Indication: ANTIEMETIC SUPPORTIVE CARE
     Dosage: DOSE: 125 MG ON DAY 1, THEN 80 MG ON DAY 2 + DAY 3
     Route: 048
     Dates: start: 20081013, end: 20081215
  5. PRIMPERAN                          /00041901/ [Concomitant]
     Indication: ANTIEMETIC SUPPORTIVE CARE
     Route: 042
     Dates: start: 20081013, end: 20081215
  6. NEUPOGEN [Concomitant]
     Indication: ADJUVANT THERAPY
     Dosage: DOSE: 30 MILLION UNIT
     Route: 058
     Dates: start: 20081013, end: 20081215

REACTIONS (1)
  - LEUKOCYTOCLASTIC VASCULITIS [None]
